FAERS Safety Report 9473179 (Version 2)
Quarter: 2013Q3

REPORT INFORMATION
  Report Type: Spontaneous
  Country: US (occurrence: US)
  Receive Date: 20130823
  Receipt Date: 20130823
  Transmission Date: 20140515
  Serious: Yes (Hospitalization)
  Sender: FDA-Public Use
  Company Number: US-BRISTOL-MYERS SQUIBB COMPANY-18731687

PATIENT
  Age: 84 Year
  Sex: Female
  Weight: 84 kg

DRUGS (13)
  1. SPRYCEL [Suspect]
     Indication: CHRONIC MYELOID LEUKAEMIA
     Dates: start: 20121130, end: 20130328
  2. NEURONTIN [Concomitant]
     Dosage: CAPSULES
     Route: 048
  3. DOCUSATE SODIUM\SENNOSIDES [Concomitant]
     Dosage: 1DF:8.6MG-50MG TABLET
     Route: 048
  4. ADVAIR DISKUS [Concomitant]
     Dosage: 1DF: 100-50 MCG DISK, INHALATION
     Route: 055
  5. FLONASE [Concomitant]
     Dosage: SUSPENSION, SPRAY, INHALATION ROUTE
     Route: 045
  6. ALBUTEROL SULFATE [Concomitant]
     Dosage: HFA AEROSOL WITH ADAPTER(GM)2 INHALATIONS
     Route: 055
  7. AMLODIPINE BESYLATE [Concomitant]
     Dosage: TABLETS
     Route: 048
  8. ASPIRIN [Concomitant]
     Dosage: ENTERIC COATED TABLET
     Route: 048
  9. DIPHENHYDRAMINE HCL [Concomitant]
     Dosage: CAPSULES
     Route: 048
  10. DIOVAN HCT [Concomitant]
     Dosage: 1DF: 320-12.5MG TABLETS
     Route: 048
  11. PRILOSEC [Concomitant]
     Dosage: ENTERIC-COATED TABLET
     Route: 048
  12. RESTORIL [Concomitant]
     Dosage: CAPSULES
     Route: 048
  13. VICODIN [Concomitant]
     Indication: PAIN
     Dosage: 1DF:5MG-500MG TABLETS
     Route: 048

REACTIONS (2)
  - Atrial fibrillation [Unknown]
  - Pleural effusion [Recovered/Resolved]
